FAERS Safety Report 6747434-8 (Version None)
Quarter: 2010Q2

REPORT INFORMATION
  Report Type: 
  Country: None (occurrence: None)
  Receive Date: 20100528
  Receipt Date: 20100520
  Transmission Date: 20101027
  Serious: Yes (Hospitalization)
  Sender: FDA-Public Use
  Company Number: FR-JNJFOC-20100406481

PATIENT
  Sex: Male

DRUGS (14)
  1. DORIBAX [Suspect]
     Indication: HYPERSENSITIVITY
     Route: 041
  2. NEXIUM [Concomitant]
  3. KARDEGIC [Concomitant]
  4. SIMVASTATIN [Concomitant]
  5. AMIKIN [Concomitant]
  6. TAMSULOSIN HCL [Concomitant]
  7. TAZOCILLINE [Concomitant]
  8. PIPERACILLINE [Concomitant]
  9. CIPROFLOXACIN HCL [Concomitant]
  10. CIPROFLOXACIN HCL [Concomitant]
  11. CEFTRIAXONE [Concomitant]
  12. FLAGYL [Concomitant]
  13. GENTAMICIN [Concomitant]
  14. NOZINAN [Concomitant]

REACTIONS (1)
  - AGRANULOCYTOSIS [None]
